FAERS Safety Report 8048866-0 (Version None)
Quarter: 2012Q1

REPORT INFORMATION
  Report Type: 
  Country: None (occurrence: None)
  Receive Date: 20120117
  Receipt Date: 20120112
  Transmission Date: 20120608
  Serious: Yes (Other)
  Sender: FDA-Public Use
  Company Number: US-ROXANE LABORATORIES, INC.-2012-RO-00466RO

PATIENT
  Age: 79 Year
  Sex: Female

DRUGS (4)
  1. INFLIXIMAB [Suspect]
     Indication: CROHN'S DISEASE
  2. LISINOPRIL [Suspect]
  3. CLOPIDOGREL [Suspect]
  4. AZATHIOPRINE [Suspect]
     Indication: CROHN'S DISEASE

REACTIONS (3)
  - OSTEOMYELITIS [None]
  - ACTINOMYCOSIS [None]
  - NEUTROPENIA [None]
